FAERS Safety Report 9133298 (Version 1)
Quarter: 2013Q1

REPORT INFORMATION
  Report Type: Spontaneous
  Country: US (occurrence: US)
  Receive Date: 20130301
  Receipt Date: 20130301
  Transmission Date: 20140127
  Serious: Yes (Death, Other)
  Sender: FDA-Public Use
  Company Number: US-ASTRAZENECA-2013SE13113

PATIENT
  Age: 57 Year
  Sex: Female

DRUGS (8)
  1. MERREM [Suspect]
     Route: 042
  2. VANCOMYCIN [Suspect]
     Route: 065
  3. BACTRIM [Suspect]
     Route: 065
  4. JAKAFI [Suspect]
     Indication: MYELOFIBROSIS
     Route: 048
  5. JAKAFI [Suspect]
     Indication: MYELOFIBROSIS
     Route: 048
     Dates: start: 2012, end: 2012
  6. JAKAFI [Suspect]
     Indication: MYELOFIBROSIS
     Route: 048
     Dates: start: 20120718
  7. VORICONAZOLE [Concomitant]
  8. VALTREX [Concomitant]

REACTIONS (4)
  - Myelodysplastic syndrome transformation [Fatal]
  - Device related sepsis [Unknown]
  - Febrile neutropenia [Unknown]
  - Thrombocytopenia [Unknown]
